FAERS Safety Report 14176478 (Version 2)
Quarter: 2018Q1

REPORT INFORMATION
  Report Type: Report from Study
  Country: BR (occurrence: BR)
  Receive Date: 20171109
  Receipt Date: 20180213
  Transmission Date: 20180508
  Serious: Yes (Other)
  Sender: FDA-Public Use
  Company Number: PHHY2017BR164384

PATIENT
  Sex: Female
  Weight: 60 kg

DRUGS (4)
  1. TRAVATAN [Suspect]
     Active Substance: TRAVOPROST
     Indication: EYE IRRITATION
     Dosage: 1 DRP, QD (ONE DROP ON EACH EYE AT NIGHT) 4 YEARS AGO
     Route: 047
  2. TRAVATAN [Suspect]
     Active Substance: TRAVOPROST
     Indication: GLAUCOMA
  3. DORZOLAMIDE [Concomitant]
     Active Substance: DORZOLAMIDE
     Indication: PRODUCT USED FOR UNKNOWN INDICATION
     Route: 065
  4. ENALAPRIL MALEATE. [Concomitant]
     Active Substance: ENALAPRIL MALEATE
     Indication: HYPERTENSION
     Dosage: 1 DF, QD,3 YEARS AGO
     Route: 048

REACTIONS (7)
  - Eye pruritus [Recovering/Resolving]
  - Eye pain [Not Recovered/Not Resolved]
  - Eye irritation [Recovering/Resolving]
  - Cataract [Recovering/Resolving]
  - Visual impairment [Not Recovered/Not Resolved]
  - Concomitant disease aggravated [Not Recovered/Not Resolved]
  - Glaucoma [Unknown]
